FAERS Safety Report 7275025-1 (Version None)
Quarter: 2011Q1

REPORT INFORMATION
  Report Type: 
  Country: None (occurrence: None)
  Receive Date: 20110202
  Receipt Date: 20110202
  Transmission Date: 20110831
  Serious: No
  Sender: FDA-Public Use
  Company Number: None

PATIENT

DRUGS (1)
  1. BUDEPRION XL 300MG ONE DAILY [Suspect]
     Indication: DEPRESSION
     Dosage: 300MG DAILY ORAL
     Route: 048
     Dates: start: 20060101

REACTIONS (2)
  - PRODUCT SUBSTITUTION ISSUE [None]
  - DRUG INEFFECTIVE [None]
